FAERS Safety Report 8788849 (Version 2)
Quarter: 2013Q4

REPORT INFORMATION
  Report Type: Spontaneous
  Country: US (occurrence: US)
  Receive Date: 20120916
  Receipt Date: 20131101
  Transmission Date: 20140711
  Serious: Yes (Hospitalization, Other)
  Sender: FDA-Public Use
  Company Number: US-009507513-1209USA003058

PATIENT
  Age: 27 Year
  Sex: Male

DRUGS (4)
  1. ISENTRESS [Suspect]
     Dosage: UNK
     Route: 048
     Dates: end: 20120520
  2. TMC-114 [Suspect]
     Dosage: UNK
     Route: 048
     Dates: end: 20120520
  3. METHYLENEDIOXYMETHAMPHETAMINE [Suspect]
  4. NORVIR [Suspect]
     Dosage: UNK
     Route: 048
     Dates: end: 20120520

REACTIONS (1)
  - Rhabdomyolysis [Unknown]
